FAERS Safety Report 6389177-9 (Version None)
Quarter: 2009Q3

REPORT INFORMATION
  Report Type: 
  Country: None (occurrence: None)
  Receive Date: 20090929
  Receipt Date: 20090813
  Transmission Date: 20100115
  Serious: Yes (Other)
  Sender: FDA-Public Use
  Company Number: E-09-284

PATIENT
  Sex: Female

DRUGS (2)
  1. SULFAMETHOXAZOLE AND TRIMETHOPRIM [Suspect]
     Indication: PROPHYLAXIS URINARY TRACT INFECTION
     Dosage: ONE P.O. QD
     Dates: start: 20090718, end: 20090721
  2. AMLODIPINE [Concomitant]

REACTIONS (4)
  - DRY MOUTH [None]
  - HYPERSENSITIVITY [None]
  - OEDEMA GENITAL [None]
  - RASH [None]
